FAERS Safety Report 18128985 (Version 1)
Quarter: 2020Q3

REPORT INFORMATION
  Report Type: Report from Study
  Country: IL (occurrence: IL)
  Receive Date: 20200810
  Receipt Date: 20200810
  Transmission Date: 20201103
  Serious: Yes (Other)
  Sender: FDA-Public Use
  Company Number: NVSC2020IL220539

PATIENT
  Age: 60 Year
  Sex: Female

DRUGS (3)
  1. SANDOSTATIN LAR DEPOT [Suspect]
     Active Substance: OCTREOTIDE ACETATE
     Indication: ACROMEGALY
     Dosage: 30 MG, Q4W
     Route: 030
     Dates: start: 20110113
  2. SANDOSTATIN LAR DEPOT [Suspect]
     Active Substance: OCTREOTIDE ACETATE
  3. SANDOSTATIN LAR DEPOT [Suspect]
     Active Substance: OCTREOTIDE ACETATE

REACTIONS (5)
  - COVID-19 [Recovered/Resolved]
  - Feeling abnormal [Unknown]
  - Chest pain [Unknown]
  - Hyposmia [Unknown]
  - Back pain [Unknown]

NARRATIVE: CASE EVENT DATE: 20200721
